FAERS Safety Report 26182993 (Version 1)
Quarter: 2025Q4

REPORT INFORMATION
  Report Type: Spontaneous
  Country: EU (occurrence: EU)
  Receive Date: 20251221
  Receipt Date: 20251221
  Transmission Date: 20260118
  Serious: No
  Sender: TRAVERE THERAPEUTICS
  Company Number: EU-CSL-13130

PATIENT
  Sex: Female

DRUGS (6)
  1. FILSPARI [Suspect]
     Active Substance: SPARSENTAN
     Indication: Product used for unknown indication
     Dosage: 400 MG, QD
     Route: 048
     Dates: start: 202504, end: 2025
  2. FILSPARI [Suspect]
     Active Substance: SPARSENTAN
     Dosage: 200 MG, QD
     Route: 048
     Dates: start: 202507
  3. VITAMIN D [Concomitant]
     Active Substance: VITAMIN D NOS
  4. PANTOPRAZOLE [Concomitant]
     Active Substance: PANTOPRAZOLE
  5. SULFAMETROLE\TRIMETHOPRIM [Concomitant]
     Active Substance: SULFAMETROLE\TRIMETHOPRIM
     Indication: Antifungal prophylaxis
     Dosage: EVERY 2ND DAY FOR 3 MONTHS
  6. BUDESONIDE [Concomitant]
     Active Substance: BUDESONIDE
     Dosage: 16 MG, QD FOR 9 MONTHS, FOLLOWED BY TAPERING OVER 2 MONTHS

REACTIONS (1)
  - Hypotension [Unknown]

NARRATIVE: CASE EVENT DATE: 20250701
